FAERS Safety Report 4543134-3 (Version None)
Quarter: 2004Q4

REPORT INFORMATION
  Report Type: 
  Country: None (occurrence: None)
  Receive Date: 20041230
  Receipt Date: 20041230
  Transmission Date: 20050328
  Serious: Yes (Hospitalization)
  Sender: FDA-Public Use
  Company Number: None

PATIENT
  Sex: Male

DRUGS (7)
  1. GLEEVEC [Suspect]
     Indication: PANCREATIC CARCINOMA
     Dosage: 400MG/DAY PO DAYS 1-14
     Route: 048
     Dates: start: 20041210, end: 20041216
  2. GLEEVEC [Suspect]
     Indication: PANCREATIC CARCINOMA
     Dosage: 400MG/DAY PO DAYS 1-14
     Route: 048
     Dates: start: 20041221, end: 20041224
  3. GEMCITABINE [Suspect]
     Indication: PANCREATIC CARCINOMA
     Dosage: 700 MG/M2 IV DAYS 1 + 8
     Route: 042
     Dates: start: 20041210
  4. GEMCITABINE [Suspect]
     Indication: PANCREATIC CARCINOMA
     Dosage: 700 MG/M2 IV DAYS 1 + 8
     Route: 042
     Dates: start: 20041221
  5. ZOFRAN [Concomitant]
  6. LEVAQUIN [Concomitant]
  7. DEMEROL [Concomitant]

REACTIONS (9)
  - BILE DUCT OBSTRUCTION [None]
  - CHOLANGITIS [None]
  - HAEMOGLOBIN DECREASED [None]
  - HEPATOTOXICITY [None]
  - MELAENA [None]
  - NAUSEA [None]
  - PYREXIA [None]
  - TUMOUR LYSIS SYNDROME [None]
  - WHITE BLOOD CELL COUNT INCREASED [None]
